FAERS Safety Report 8914123 (Version 3)
Quarter: 2013Q1

REPORT INFORMATION
  Report Type: Spontaneous
  Country: US (occurrence: US)
  Receive Date: 20121119
  Receipt Date: 20130208
  Transmission Date: 20140127
  Serious: Yes (Other)
  Sender: FDA-Public Use
  Company Number: US-AMGEN-USASP2012073260

PATIENT
  Age: 62 Year
  Sex: Female

DRUGS (4)
  1. NEULASTA [Suspect]
     Indication: FEBRILE NEUTROPENIA
     Dosage: UNK
     Dates: start: 201111
  2. NEUPOGEN [Suspect]
     Indication: PRODUCT USED FOR UNKNOWN INDICATION
     Dosage: UNK
  3. RITUXAN [Concomitant]
     Dosage: UNK
  4. BENDAMUSTINE [Concomitant]
     Dosage: UNK

REACTIONS (2)
  - White blood cell count decreased [Unknown]
  - Pain [Unknown]
